FAERS Safety Report 17221341 (Version 4)
Quarter: 2020Q1

REPORT INFORMATION
  Report Type: Report from Study
  Country: None (occurrence: DE)
  Receive Date: 20191231
  Receipt Date: 20200317
  Transmission Date: 20200409
  Serious: Yes (Hospitalization)
  Sender: FDA-Public Use
  Company Number: DE-ABBVIE-19K-062-3214434-00

PATIENT
  Age: 32 Year
  Sex: Male
  Weight: 94 kg

DRUGS (5)
  1. QUETIAPIN [Concomitant]
     Active Substance: QUETIAPINE
     Indication: ANXIETY
  2. HUMIRA [Suspect]
     Active Substance: ADALIMUMAB
     Indication: CROHN^S DISEASE
     Route: 058
     Dates: start: 201806
  3. VENLAFAXINE [Suspect]
     Active Substance: VENLAFAXINE HYDROCHLORIDE
     Indication: DEPRESSION
     Dosage: LONG-TERM THERAPY; 1-0-0
     Route: 065
     Dates: start: 2012, end: 201908
  4. PANTOZOL [Concomitant]
     Active Substance: PANTOPRAZOLE SODIUM
     Indication: GASTRITIS
     Dosage: LONG-TERM THERAPY; 1-0-0
     Route: 048
     Dates: start: 201811
  5. QUETIAPIN [Concomitant]
     Active Substance: QUETIAPINE
     Indication: SLEEP DISORDER

REACTIONS (14)
  - Anxiety disorder [Unknown]
  - Sleep apnoea syndrome [Unknown]
  - Alanine aminotransferase increased [Unknown]
  - Asthma [Unknown]
  - Depression [Unknown]
  - Unevaluable event [Unknown]
  - Aspartate aminotransferase increased [Unknown]
  - Panic reaction [Unknown]
  - Gamma-glutamyltransferase increased [Unknown]
  - Impulsive behaviour [Unknown]
  - Narcissistic personality disorder [Unknown]
  - Anxiety [Unknown]
  - Drug ineffective [Unknown]
  - Personality disorder [Unknown]

NARRATIVE: CASE EVENT DATE: 201808
